FAERS Safety Report 17217691 (Version 1)
Quarter: 2019Q4

REPORT INFORMATION
  Report Type: Spontaneous
  Country: US (occurrence: US)
  Receive Date: 20191231
  Receipt Date: 20191231
  Transmission Date: 20200122
  Serious: Yes (Hospitalization, Other)
  Sender: FDA-Public Use
  Company Number: US-DRREDDYS-USA/USA/19/0117862

PATIENT
  Age: 38 Year
  Sex: Female

DRUGS (2)
  1. DIVALPROEX SODIUM. [Suspect]
     Active Substance: DIVALPROEX SODIUM
     Indication: PRODUCT USED FOR UNKNOWN INDICATION
     Dosage: 20 TABLETS  OF DIVALPROEX SODIUM
     Route: 048
  2. QUETIAPINE FUMARATE TABLETS [Suspect]
     Active Substance: QUETIAPINE FUMARATE
     Indication: PRODUCT USED FOR UNKNOWN INDICATION
     Dosage: 20 TABLETS OF QUETIAPINE
     Route: 048

REACTIONS (8)
  - Anxiety [Unknown]
  - Toxicity to various agents [Unknown]
  - Suicide attempt [Unknown]
  - Mental impairment [Unknown]
  - Heart rate increased [Unknown]
  - Hyperhidrosis [Unknown]
  - Respiratory rate increased [Unknown]
  - Intentional overdose [Unknown]
